FAERS Safety Report 10574036 (Version 2)
Quarter: 2014Q4

REPORT INFORMATION
  Report Type: Report from Study
  Country: US (occurrence: US)
  Receive Date: 20141110
  Receipt Date: 20141110
  Transmission Date: 20150529
  Serious: Yes (Hospitalization)
  Sender: FDA-Public Use
  Company Number: US-SA-2014SA127256

PATIENT
  Age: 50 Year
  Sex: Female

DRUGS (2)
  1. AVONEX [Concomitant]
     Active Substance: INTERFERON BETA-1A
     Dates: start: 201301, end: 20140711
  2. AUBAGIO [Suspect]
     Active Substance: TERIFLUNOMIDE
     Indication: MULTIPLE SCLEROSIS
     Route: 048
     Dates: start: 20140718

REACTIONS (4)
  - Discomfort [Unknown]
  - Diarrhoea [Unknown]
  - Knee operation [Unknown]
  - Pain [Unknown]

NARRATIVE: CASE EVENT DATE: 2014
